FAERS Safety Report 5052522-0 (Version None)
Quarter: 2006Q3

REPORT INFORMATION
  Report Type: 
  Country: None (occurrence: None)
  Receive Date: 20060717
  Receipt Date: 20060703
  Transmission Date: 20061208
  Serious: Yes (Other)
  Sender: FDA-Public Use
  Company Number: PHBS2006US09900

PATIENT
  Age: 59 Year
  Sex: Male

DRUGS (8)
  1. CYCLOSPORINE [Suspect]
     Indication: STEM CELL TRANSPLANT
     Dosage: 3 MG/KG/D
     Route: 042
  2. CYCLOSPORINE [Suspect]
     Route: 048
  3. PREDNISONE (NGX) [Suspect]
     Indication: STEM CELL TRANSPLANT
  4. MYCOPHENOLATE MOFETIL [Suspect]
     Indication: STEM CELL TRANSPLANT
  5. PUVA [Suspect]
     Indication: STEM CELL TRANSPLANT
  6. GLUCOCORTICOSTEROIDS [Concomitant]
     Route: 061
  7. CYCLOPHOSPHAMIDE [Concomitant]
     Indication: STEM CELL TRANSPLANT
     Dosage: 120 MG/KG/D
  8. FLUDARABINE [Concomitant]
     Indication: STEM CELL TRANSPLANT
     Dosage: 125 MG/M2

REACTIONS (4)
  - GRAFT VERSUS HOST DISEASE [None]
  - OBLITERATIVE BRONCHIOLITIS [None]
  - SKIN NEOPLASM EXCISION [None]
  - SUPERFICIAL SPREADING MELANOMA STAGE II [None]
